FAERS Safety Report 7246446-8 (Version None)
Quarter: 2011Q1

REPORT INFORMATION
  Report Type: 
  Country: None (occurrence: None)
  Receive Date: 20110126
  Receipt Date: 20110119
  Transmission Date: 20110831
  Serious: Yes (Other)
  Sender: FDA-Public Use
  Company Number: US-RB-019884-10

PATIENT
  Age: 59 Year
  Sex: Female

DRUGS (1)
  1. SUBOXONE [Suspect]
     Indication: PRODUCT USED FOR UNKNOWN INDICATION
     Dosage: SUBLINGUAL FILM - DOSING INFORMATION UNKNOWN
     Route: 065

REACTIONS (6)
  - CONFUSIONAL STATE [None]
  - MEMORY IMPAIRMENT [None]
  - BLOOD GLUCOSE DECREASED [None]
  - NECK PAIN [None]
  - BACK PAIN [None]
  - HALLUCINATION, TACTILE [None]
